FAERS Safety Report 7733572-X (Version None)
Quarter: 2011Q3

REPORT INFORMATION
  Report Type: 
  Country: None (occurrence: None)
  Receive Date: 20110907
  Receipt Date: 20110825
  Transmission Date: 20111222
  Serious: Yes (Death)
  Sender: FDA-Public Use
  Company Number: CA-ELI_LILLY_AND_COMPANY-CA201108007728

PATIENT
  Sex: Male

DRUGS (5)
  1. ZYPREXA [Suspect]
     Indication: DELIRIUM
     Dosage: 10 MG, EACH EVENING
  2. ZYPREXA [Suspect]
     Dosage: 7.5 MG, EACH EVENING
  3. ASPIRIN [Concomitant]
  4. ZYPREXA [Suspect]
     Dosage: 5 MG, EACH EVENING
  5. ZYPREXA ZYDIS [Suspect]
     Indication: DELIRIUM
     Dosage: 5 MG, EACH EVENING

REACTIONS (8)
  - BLOOD CREATININE INCREASED [None]
  - OESOPHAGEAL CANCER METASTATIC [None]
  - CONJUNCTIVITIS VIRAL [None]
  - BRONCHITIS [None]
  - WEIGHT INCREASED [None]
  - HEPATIC STEATOSIS [None]
  - PHARYNGITIS [None]
  - DIABETES MELLITUS [None]
